FAERS Safety Report 6671557-5 (Version None)
Quarter: 2010Q2

REPORT INFORMATION
  Report Type: 
  Country: None (occurrence: None)
  Receive Date: 20100407
  Receipt Date: 20100331
  Transmission Date: 20101027
  Serious: Yes (Death, Life-Threatening, Hospitalization)
  Sender: FDA-Public Use
  Company Number: DE-ELI_LILLY_AND_COMPANY-DE201003003989

PATIENT
  Sex: Male

DRUGS (12)
  1. ALIMTA [Suspect]
     Indication: LUNG NEOPLASM MALIGNANT
     Dosage: UNK, UNKNOWN
     Route: 065
     Dates: start: 20091001, end: 20091101
  2. ALIMTA [Suspect]
     Dosage: UNK, UNKNOWN
     Route: 065
     Dates: start: 20091201
  3. ALIMTA [Suspect]
     Dosage: UNK, UNKNOWN
     Route: 065
     Dates: start: 20100108
  4. CISPLATIN [Concomitant]
     Dosage: UNK, UNKNOWN
     Route: 065
     Dates: start: 20100101
  5. FOLSAN [Concomitant]
     Dosage: 5 MG, EACH MORNING
     Route: 065
  6. SALVIATHYMOL [Concomitant]
     Dosage: UNK, 3 TO 4 TIMES DAILY FOR 8 DAYS AFTER CHEMOTHERAPY
     Route: 065
  7. SELEN [Concomitant]
     Dosage: UNK, EACH EVENING
     Route: 065
  8. VITAMIN A [Concomitant]
     Dosage: 30000 D/F, EACH MORNING
     Route: 065
  9. HELIXOR [Concomitant]
     Dosage: 20 MG, 3/W
     Route: 058
  10. VITAMIN B-12 [Concomitant]
     Dosage: 1000 MG, EVER 3 MONTHS
     Route: 058
  11. IMODIUM [Concomitant]
     Dosage: UNK, AS NEEDED
     Route: 065
  12. INNOHEP [Concomitant]
     Dosage: 20000 D/F, 0.5ML EVERY EVENING
     Route: 058

REACTIONS (14)
  - CHEST PAIN [None]
  - DIAPHRAGMATIC PARALYSIS [None]
  - DIARRHOEA [None]
  - DYSPNOEA [None]
  - FLATULENCE [None]
  - GENERAL PHYSICAL HEALTH DETERIORATION [None]
  - MALIGNANT NEOPLASM PROGRESSION [None]
  - NAUSEA [None]
  - OXYGEN SATURATION DECREASED [None]
  - PLEURAL EFFUSION [None]
  - PNEUMONIA [None]
  - PULMONARY EMBOLISM [None]
  - RESPIRATORY FAILURE [None]
  - TACHYCARDIA [None]
